FAERS Safety Report 25997411 (Version 1)
Quarter: 2025Q4

REPORT INFORMATION
  Report Type: Spontaneous
  Country: US (occurrence: US)
  Receive Date: 20251104
  Receipt Date: 20251104
  Transmission Date: 20260118
  Serious: No
  Sender: ELI LILLY AND COMPANY
  Company Number: US-ELI_LILLY_AND_COMPANY-US202510034164

PATIENT
  Age: 61 Year
  Sex: Male

DRUGS (2)
  1. EBGLYSS [Suspect]
     Active Substance: LEBRIKIZUMAB-LBKZ
     Indication: Dermatitis atopic
     Dosage: UNK UNK, UNKNOWN
     Route: 065
  2. EBGLYSS [Suspect]
     Active Substance: LEBRIKIZUMAB-LBKZ
     Dosage: UNK UNK, UNKNOWN
     Route: 065
     Dates: start: 20251020

REACTIONS (2)
  - Skin fissures [Unknown]
  - Rash [Unknown]

NARRATIVE: CASE EVENT DATE: 20251022
